FAERS Safety Report 11741053 (Version 1)
Quarter: 2015Q4

REPORT INFORMATION
  Report Type: Spontaneous
  Country: IT (occurrence: IT)
  Receive Date: 20151116
  Receipt Date: 20151116
  Transmission Date: 20160304
  Serious: Yes (Other)
  Sender: FDA-Public Use
  Company Number: IT-HOSPIRA-3075360

PATIENT
  Age: 77 Year
  Sex: Male
  Weight: 65 kg

DRUGS (2)
  1. GEMCITABINE HYDROCHLORIDE. [Suspect]
     Active Substance: GEMCITABINE HYDROCHLORIDE
     Indication: BLADDER CANCER STAGE IV
     Route: 042
     Dates: start: 20151009, end: 20151104
  2. CARBOPLATIN TEVA [Suspect]
     Active Substance: CARBOPLATIN
     Indication: BLADDER CANCER STAGE IV
     Route: 042
     Dates: start: 20151009, end: 20151104

REACTIONS (2)
  - Pruritus [Recovering/Resolving]
  - Roseola [Recovering/Resolving]

NARRATIVE: CASE EVENT DATE: 20151102
